FAERS Safety Report 7490288 (Version 28)
Quarter: 2016Q4

REPORT INFORMATION
  Report Type: Report from Study
  Country: CA (occurrence: CA)
  Receive Date: 20100720
  Receipt Date: 20161025
  Transmission Date: 20170207
  Serious: Yes (Other)
  Sender: FDA-Public Use
  Company Number: PHHY2009CA42077

PATIENT
  Age: 56 Year
  Sex: Female

DRUGS (9)
  1. SANDOSTATIN LAR DEPOT [Suspect]
     Active Substance: OCTREOTIDE ACETATE
     Dosage: 40 MG, QMO
     Route: 030
     Dates: start: 20091124
  2. SANDOSTATIN LAR DEPOT [Suspect]
     Active Substance: OCTREOTIDE ACETATE
     Indication: PANCREATIC NEUROENDOCRINE TUMOUR METASTATIC
     Dosage: 30 MG, QMO
     Route: 030
     Dates: start: 20090623
  3. SANDOSTATIN LAR DEPOT [Suspect]
     Active Substance: OCTREOTIDE ACETATE
     Dosage: 30 MG, QMO
     Route: 030
     Dates: start: 20110817
  4. PROPANOLOL [Concomitant]
     Active Substance: PROPRANOLOL HYDROCHLORIDE
     Indication: HYPERTENSION
     Route: 065
  5. SANDOSTATIN LAR DEPOT [Suspect]
     Active Substance: OCTREOTIDE ACETATE
     Dosage: 30 MG, QMO
     Route: 030
     Dates: start: 20160118
  6. ADALAT CC [Concomitant]
     Active Substance: NIFEDIPINE
     Indication: HYPERTENSION
     Route: 065
  7. SANDOSTATIN LAR DEPOT [Suspect]
     Active Substance: OCTREOTIDE ACETATE
     Dosage: 40 MG, TIW
     Route: 030
     Dates: start: 20101213
  8. SANDOSTATIN LAR DEPOT [Suspect]
     Active Substance: OCTREOTIDE ACETATE
     Dosage: 30 MG, QMO
     Route: 030
     Dates: start: 20140512
  9. SANDOSTATIN LAR DEPOT [Suspect]
     Active Substance: OCTREOTIDE ACETATE
     Dosage: 30 MG, TIW
     Route: 030
     Dates: start: 20101213

REACTIONS (22)
  - Heart rate increased [Unknown]
  - Decreased appetite [Unknown]
  - Inflammation [Unknown]
  - Hepatic pain [Unknown]
  - Headache [Unknown]
  - Cholelithiasis [Unknown]
  - Pain [Unknown]
  - Abdominal discomfort [Unknown]
  - Stress [Unknown]
  - Hyperhidrosis [Unknown]
  - Inappropriate schedule of drug administration [Unknown]
  - Hypertrophic cardiomyopathy [Unknown]
  - Palpitations [Unknown]
  - Diarrhoea [Unknown]
  - Rash generalised [Unknown]
  - Fatigue [Unknown]
  - Tenderness [Unknown]
  - Asthenia [Unknown]
  - Blood pressure increased [Unknown]
  - Feeling abnormal [Unknown]
  - Influenza [Unknown]
  - Abdominal pain [Unknown]

NARRATIVE: CASE EVENT DATE: 20131001
